FAERS Safety Report 7686175-X (Version None)
Quarter: 2011Q3

REPORT INFORMATION
  Report Type: 
  Country: None (occurrence: None)
  Receive Date: 20110816
  Receipt Date: 20110811
  Transmission Date: 20111222
  Serious: No
  Sender: FDA-Public Use
  Company Number: US-TEVA-296427USA

PATIENT
  Sex: Female
  Weight: 63.56 kg

DRUGS (4)
  1. ZOLOFT [Concomitant]
     Indication: ANXIETY
  2. XANAX [Concomitant]
     Indication: ANXIETY
  3. PLAN B ONE-STEP [Suspect]
     Indication: POST COITAL CONTRACEPTION
     Dosage: 1.5 MILLIGRAM;
     Route: 048
     Dates: start: 20110717, end: 20110717
  4. PLAN B ONE-STEP [Suspect]
     Dosage: 1.5 MILLIGRAM;
     Route: 048
     Dates: start: 20110805, end: 20110805

REACTIONS (2)
  - MENSTRUATION IRREGULAR [None]
  - FLATULENCE [None]
